FAERS Safety Report 6707179-7 (Version None)
Quarter: 2010Q2

REPORT INFORMATION
  Report Type: 
  Country: None (occurrence: None)
  Receive Date: 20100429
  Receipt Date: 20100427
  Transmission Date: 20101027
  Serious: Yes (Death, Life-Threatening, Hospitalization)
  Sender: FDA-Public Use
  Company Number: 2010SP016485

PATIENT
  Age: 85 Year
  Sex: Female
  Weight: 50 kg

DRUGS (11)
  1. TEMODAL [Suspect]
     Indication: GLIOBLASTOMA MULTIFORME
     Dosage: 100 MG; ; PO
     Route: 048
     Dates: start: 20100125, end: 20100221
  2. DEPAKENE [Concomitant]
  3. GASTER D [Concomitant]
  4. SELBEX [Concomitant]
  5. RINDERON [Concomitant]
  6. ISOBIDE [Concomitant]
  7. CODEINE SULFATE [Concomitant]
  8. ACETAMINOPHEN [Concomitant]
  9. LOXONIN [Concomitant]
  10. KALLIKREIN [Concomitant]
  11. DEPAS [Concomitant]

REACTIONS (3)
  - NO THERAPEUTIC RESPONSE [None]
  - PANCYTOPENIA [None]
  - PNEUMONIA FUNGAL [None]
